FAERS Safety Report 25553631 (Version 3)
Quarter: 2025Q3

REPORT INFORMATION
  Report Type: Report from Study
  Country: US (occurrence: US)
  Receive Date: 20250715
  Receipt Date: 20250901
  Transmission Date: 20251021
  Serious: No
  Sender: SUNOVION
  Company Number: US-SUMITOMO PHARMA SWITZERLAND GMBH-2025SPA007995

PATIENT
  Age: 70 Year
  Sex: Male

DRUGS (13)
  1. ORGOVYX [Suspect]
     Active Substance: RELUGOLIX
     Indication: Prostate cancer
     Route: 048
     Dates: start: 20250612, end: 20250612
  2. ORGOVYX [Suspect]
     Active Substance: RELUGOLIX
     Route: 048
  3. ALLEGRA [Concomitant]
     Active Substance: FEXOFENADINE HYDROCHLORIDE
  4. LORAZEPAM [Concomitant]
     Active Substance: LORAZEPAM
  5. OLMESARTAN [Concomitant]
     Active Substance: OLMESARTAN
  6. PROTONIX [Concomitant]
     Active Substance: PANTOPRAZOLE SODIUM
  7. ROSUVASTATIN [Concomitant]
     Active Substance: ROSUVASTATIN
  8. TYLENOL 8 HR ARTHRITIS PAIN [Concomitant]
     Active Substance: ACETAMINOPHEN
     Route: 048
  9. ZETIA [Concomitant]
     Active Substance: EZETIMIBE
  10. SILODOSIN [Concomitant]
     Active Substance: SILODOSIN
  11. TELMISARTAN AND HYDROCHLOROTHIAZIDE [Concomitant]
     Active Substance: HYDROCHLOROTHIAZIDE\TELMISARTAN
  12. Thc free oral liquid [Concomitant]
     Route: 048
  13. EPLERENONE [Concomitant]
     Active Substance: EPLERENONE

REACTIONS (8)
  - Sleep disorder [Unknown]
  - Anxiety [Unknown]
  - Alopecia [Unknown]
  - Pollakiuria [Unknown]
  - Unevaluable event [Unknown]
  - Insomnia [Unknown]
  - Hot flush [Unknown]
  - Hypertension [Not Recovered/Not Resolved]
